FAERS Safety Report 21364501 (Version 1)
Quarter: 2022Q3

REPORT INFORMATION
  Report Type: Report from Study
  Country: FR (occurrence: FR)
  Receive Date: 20220922
  Receipt Date: 20220922
  Transmission Date: 20221027
  Serious: Yes (Other)
  Sender: FDA-Public Use
  Company Number: FR-CELGENE-FRA-20210608027

PATIENT
  Age: 77 Year
  Sex: Female

DRUGS (18)
  1. REVLIMID [Suspect]
     Active Substance: LENALIDOMIDE
     Indication: Plasma cell myeloma
     Dosage: 10 MILLIGRAMS
     Route: 048
     Dates: start: 20200331, end: 20200413
  2. REVLIMID [Suspect]
     Active Substance: LENALIDOMIDE
     Dosage: 10 MILLIGRAMS
     Route: 048
     Dates: start: 20200421, end: 20200504
  3. REVLIMID [Suspect]
     Active Substance: LENALIDOMIDE
     Dosage: 10 MILLIGRAMS
     Route: 048
     Dates: start: 20200512, end: 20200525
  4. REVLIMID [Suspect]
     Active Substance: LENALIDOMIDE
     Dosage: 10 MILLIGRAMS
     Route: 048
     Dates: start: 20200602, end: 20200622
  5. REVLIMID [Suspect]
     Active Substance: LENALIDOMIDE
     Dosage: 10 MILLIGRAMS
     Route: 048
     Dates: start: 20201229, end: 20210117
  6. REVLIMID [Suspect]
     Active Substance: LENALIDOMIDE
     Dosage: 10 MILLIGRAMS
     Route: 048
     Dates: start: 20210125, end: 20210214
  7. REVLIMID [Suspect]
     Active Substance: LENALIDOMIDE
     Dosage: 10 MILLIGRAMS
     Route: 048
     Dates: start: 20210222, end: 20210304
  8. REVLIMID [Suspect]
     Active Substance: LENALIDOMIDE
     Dosage: 10 MILLIGRAMS
     Route: 048
     Dates: start: 20200630, end: 20200630
  9. DEXAMETHASONE [Suspect]
     Active Substance: DEXAMETHASONE
     Indication: Plasma cell myeloma
     Dosage: 20 MILLIGRAMS
     Route: 048
     Dates: start: 20200331, end: 20200413
  10. DEXAMETHASONE [Suspect]
     Active Substance: DEXAMETHASONE
     Dosage: 20 MILLIGRAMS
     Route: 048
     Dates: start: 20200421, end: 20200504
  11. DEXAMETHASONE [Suspect]
     Active Substance: DEXAMETHASONE
     Dosage: 20 MILLIGRAMS
     Route: 048
     Dates: start: 20200512, end: 20200525
  12. DEXAMETHASONE [Suspect]
     Active Substance: DEXAMETHASONE
     Dosage: 20 MILLIGRAMS
     Route: 048
     Dates: start: 20200602, end: 20200622
  13. DEXAMETHASONE [Suspect]
     Active Substance: DEXAMETHASONE
     Dosage: 20 MILLIGRAMS
     Route: 048
     Dates: start: 20200623, end: 20200629
  14. VELCADE [Suspect]
     Active Substance: BORTEZOMIB
     Indication: Plasma cell myeloma
     Dosage: 1.88 MILLIGRAMS
     Route: 042
     Dates: start: 20200331, end: 20200413
  15. VELCADE [Suspect]
     Active Substance: BORTEZOMIB
     Dosage: 1.88 MILLIGRAMS
     Route: 042
     Dates: start: 20200421, end: 20200504
  16. VELCADE [Suspect]
     Active Substance: BORTEZOMIB
     Dosage: 1.88 MILLIGRAMS
     Route: 042
     Dates: start: 20200512, end: 20200525
  17. VELCADE [Suspect]
     Active Substance: BORTEZOMIB
     Dosage: 1.45 MILLIGRAMS
     Route: 042
     Dates: start: 20200602, end: 20200629
  18. VELCADE [Suspect]
     Active Substance: BORTEZOMIB
     Dosage: 1.45 MILLIGRAMS
     Route: 042
     Dates: start: 20200630, end: 20200630

REACTIONS (1)
  - Tubulointerstitial nephritis [Not Recovered/Not Resolved]

NARRATIVE: CASE EVENT DATE: 20210223
